FAERS Safety Report 12898668 (Version 2)
Quarter: 2016Q4

REPORT INFORMATION
  Report Type: Spontaneous
  Country: JP (occurrence: JP)
  Receive Date: 20161101
  Receipt Date: 20161117
  Transmission Date: 20170207
  Serious: Yes (Other)
  Sender: FDA-Public Use
  Company Number: JP-009507513-1610JPN016437

PATIENT

DRUGS (1)
  1. TEMODAL [Suspect]
     Active Substance: TEMOZOLOMIDE
     Indication: MALIGNANT GLIOMA
     Dosage: DAILY DOSE UNKNOWN
     Route: 065

REACTIONS (5)
  - Adverse reaction [Unknown]
  - Atypical mycobacterial infection [Unknown]
  - Liver disorder [Unknown]
  - Gastric ulcer perforation [Unknown]
  - General physical health deterioration [Unknown]
